FAERS Safety Report 6155811-1 (Version None)
Quarter: 2009Q2

REPORT INFORMATION
  Report Type: 
  Country: None (occurrence: None)
  Receive Date: 20090415
  Receipt Date: 20090403
  Transmission Date: 20091009
  Serious: Yes (Hospitalization, Other)
  Sender: FDA-Public Use
  Company Number: DE-PFIZER INC-2009192877

PATIENT

DRUGS (2)
  1. SOMATROPIN [Suspect]
     Indication: HYPOPITUITARISM
     Dosage: 0.6 MG, 1X/DAY
     Route: 058
     Dates: start: 20080122
  2. JODID [Concomitant]
     Dosage: 150 UG, 1X/DAY
     Dates: start: 20080401

REACTIONS (1)
  - BRAIN NEOPLASM [None]
